FAERS Safety Report 24095121 (Version 2)
Quarter: 2024Q3

REPORT INFORMATION
  Report Type: Spontaneous
  Country: AU (occurrence: AU)
  Receive Date: 20240716
  Receipt Date: 20240718
  Transmission Date: 20241016
  Serious: No
  Sender: CSL BEHRING
  Company Number: AU-BEH-2024175352

PATIENT
  Age: 57 Year

DRUGS (1)
  1. HIZENTRA [Suspect]
     Active Substance: HUMAN IMMUNOGLOBULIN G
     Indication: Primary immunodeficiency syndrome
     Dosage: 90 G IN 8 DIVISIONS
     Route: 058

REACTIONS (2)
  - Local reaction [Unknown]
  - Drug intolerance [Unknown]

NARRATIVE: CASE EVENT DATE: 20240606
